FAERS Safety Report 21844574 (Version 4)
Quarter: 2023Q2

REPORT INFORMATION
  Report Type: Report from Study
  Country: US (occurrence: US)
  Receive Date: 20230110
  Receipt Date: 20230413
  Transmission Date: 20230721
  Serious: Yes (Hospitalization)
  Sender: FDA-Public Use
  Company Number: US-TAKEDA-2022TUS100572

PATIENT
  Sex: Male

DRUGS (2)
  1. MARIBAVIR [Suspect]
     Active Substance: MARIBAVIR
     Indication: Lymphoma
     Dosage: 400 MILLIGRAM, BID
     Route: 048
     Dates: start: 20221226, end: 20230131
  2. MARIBAVIR [Suspect]
     Active Substance: MARIBAVIR
     Indication: Cytomegalovirus infection

REACTIONS (5)
  - Hospitalisation [Unknown]
  - Sleep disorder [Unknown]
  - Colitis [Unknown]
  - Fatigue [Unknown]
  - Product prescribing issue [Unknown]
